FAERS Safety Report 13093192 (Version 1)
Quarter: 2017Q1

REPORT INFORMATION
  Report Type: Spontaneous
  Country: US (occurrence: US)
  Receive Date: 20170106
  Receipt Date: 20170106
  Transmission Date: 20170428
  Serious: Yes (Hospitalization)
  Sender: FDA-Public Use
  Company Number: US-FRESENIUS KABI-FK201700105

PATIENT
  Age: 76 Year
  Sex: Female

DRUGS (1)
  1. BUPIVACAINE W/EPINEPHRINE (MANUFACTURER UNKNOWN) [Suspect]
     Active Substance: BUPIVACAINE HYDROCHLORIDE\EPINEPHRINE
     Indication: SHOULDER ARTHROPLASTY
     Route: 065

REACTIONS (2)
  - Nerve injury [Not Recovered/Not Resolved]
  - Procedural complication [Not Recovered/Not Resolved]
